FAERS Safety Report 9016410 (Version 9)
Quarter: 2015Q3

REPORT INFORMATION
  Report Type: Spontaneous
  Country: US (occurrence: US)
  Receive Date: 20130116
  Receipt Date: 20150812
  Transmission Date: 20151125
  Serious: Yes (Other)
  Sender: FDA-Public Use
  Company Number: US-GLAXOSMITHKLINE-A0980996A

PATIENT
  Age: 57 Year
  Sex: Female

DRUGS (13)
  1. FLOLAN [Suspect]
     Active Substance: EPOPROSTENOL SODIUM
     Dates: start: 20110930
  2. FLOLAN [Suspect]
     Active Substance: EPOPROSTENOL SODIUM
     Indication: COR PULMONALE CHRONIC
     Dates: start: 20110930
  3. FLOLAN [Suspect]
     Active Substance: EPOPROSTENOL SODIUM
     Dates: start: 20110930
  4. FLOLAN [Suspect]
     Active Substance: EPOPROSTENOL SODIUM
     Dosage: UNK
     Dates: start: 20110930
  5. FLOLAN [Suspect]
     Active Substance: EPOPROSTENOL SODIUM
     Dates: start: 20110930
  6. TRACLEER [Suspect]
     Active Substance: BOSENTAN
     Indication: PRODUCT USED FOR UNKNOWN INDICATION
     Dosage: 250 MG DAILY
  7. FLOLAN [Suspect]
     Active Substance: EPOPROSTENOL SODIUM
     Indication: PULMONARY HYPERTENSION
     Dates: start: 20110930
  8. LETAIRIS [Suspect]
     Active Substance: AMBRISENTAN
     Indication: PRODUCT USED FOR UNKNOWN INDICATION
     Dosage: UNKNOWN DOSE, UNKNOWN DOSING
     Route: 065
     Dates: start: 201406
  9. FLOLAN [Suspect]
     Active Substance: EPOPROSTENOL SODIUM
     Dates: start: 20110930
  10. FLOLAN [Suspect]
     Active Substance: EPOPROSTENOL SODIUM
     Indication: PULMONARY ARTERIAL HYPERTENSION
     Dosage: CONTINUOUS  36.46 NG/KG/MIN CONCENTRATION 45,000 PUMP RATE 56 ML/DAY VIAL STRENGTH 1.536.46 NG/[...]
     Route: 042
     Dates: start: 20110930
  11. FLOLAN [Suspect]
     Active Substance: EPOPROSTENOL SODIUM
     Dates: start: 20110930
  12. FLOLAN [Suspect]
     Active Substance: EPOPROSTENOL SODIUM
     Dates: start: 20110930
  13. FLOLAN [Suspect]
     Active Substance: EPOPROSTENOL SODIUM
     Dosage: 36.46 NG/KG/MIN, CO
     Route: 042

REACTIONS (25)
  - Syncope [Unknown]
  - Abdominal pain upper [Unknown]
  - Somnolence [Unknown]
  - Rash pustular [Unknown]
  - Weight decreased [Unknown]
  - Rash pruritic [Unknown]
  - Fatigue [Unknown]
  - Rash [Unknown]
  - Insomnia [Unknown]
  - Pain in extremity [Unknown]
  - Diarrhoea [Unknown]
  - Sinus disorder [Unknown]
  - Malaise [Unknown]
  - Loss of consciousness [Unknown]
  - Catheterisation cardiac [Unknown]
  - Toothache [Unknown]
  - Trismus [Unknown]
  - Dysarthria [Unknown]
  - Nausea [Unknown]
  - Hot flush [Unknown]
  - Hypoaesthesia oral [Unknown]
  - Hyperhidrosis [Unknown]
  - Urinary incontinence [Unknown]
  - Dyspnoea [Unknown]
  - Decreased appetite [Unknown]

NARRATIVE: CASE EVENT DATE: 201406
